FAERS Safety Report 4779102-6 (Version None)
Quarter: 2005Q3

REPORT INFORMATION
  Report Type: 
  Country: None (occurrence: None)
  Receive Date: 20050923
  Receipt Date: 20050912
  Transmission Date: 20060218
  Serious: Yes (Death, Hospitalization)
  Sender: FDA-Public Use
  Company Number: HQWYE133326AUG05

PATIENT
  Age: 85 Year
  Sex: Male

DRUGS (9)
  1. CORDARONE [Suspect]
     Dosage: 200 MG DAILY 5 DAYS PER WEEK ORAL
     Route: 048
     Dates: start: 20050222, end: 20050725
  2. ADANCOR (NICORANDIL) [Suspect]
     Dosage: 10 MG 1X PER 1 DAY ORAL
     Route: 048
  3. CASODEX [Suspect]
     Indication: PROSTATE CANCER METASTATIC
     Dosage: 50 MG 1X PER 1 DAY ORAL
     Route: 048
     Dates: start: 20050316, end: 20050725
  4. PAROXETINE HYDROCHLORIDE [Suspect]
     Dosage: 20 MG 1X PER 1 DAY ORAL
     Route: 048
     Dates: start: 20040101
  5. NEXIUM [Suspect]
     Indication: GASTRODUODENAL ULCER
     Dosage: 40 MG 1X PER 1 DAY ORAL
     Route: 048
     Dates: start: 20040101, end: 20070725
  6. JOSIR (TAMSULOSIN HYDROCHLORIDE) [Suspect]
     Indication: BENIGN PROSTATIC HYPERPLASIA
     Dosage: 0.4 MG 1X PER 1 DAY ORAL
     Route: 048
     Dates: end: 20050725
  7. FERROUS SULFATE TAB [Suspect]
     Dosage: ORAL
     Route: 048
     Dates: start: 20050523
  8. PRAVASTATIN [Suspect]
     Indication: HYPERCHOLESTEROLAEMIA
     Dosage: 20 MG 1X PER 1 DAY ORAL
     Route: 048
     Dates: end: 20050725
  9. PREVISCAN (FLUINDIONE) [Concomitant]

REACTIONS (11)
  - ANGIONEUROTIC OEDEMA [None]
  - BRAIN OEDEMA [None]
  - CONVULSION [None]
  - CYANOSIS [None]
  - DYSPNOEA [None]
  - FACE OEDEMA [None]
  - GAMMOPATHY [None]
  - HYPOCOMPLEMENTAEMIA [None]
  - LOCALISED OEDEMA [None]
  - PARANEOPLASTIC SYNDROME [None]
  - RESPIRATORY ARREST [None]
